FAERS Safety Report 9632122 (Version 1)
Quarter: 2013Q4

REPORT INFORMATION
  Report Type: Report from Study
  Country: US (occurrence: IT)
  Receive Date: 20131018
  Receipt Date: 20131018
  Transmission Date: 20140711
  Serious: Yes (Other)
  Sender: FDA-Public Use
  Company Number: IT-PFIZER INC-2013297329

PATIENT
  Age: 63 Year
  Sex: Female

DRUGS (3)
  1. FLUOROURACIL [Suspect]
     Dosage: UNK
  2. CYTOXAN [Concomitant]
     Dosage: UNK
  3. VINCRISTINE [Concomitant]
     Dosage: UNK

REACTIONS (2)
  - Myocardial infarction [Unknown]
  - Angina pectoris [Unknown]
